FAERS Safety Report 19667644 (Version 1)
Quarter: 2021Q3

REPORT INFORMATION
  Report Type: Spontaneous
  Country: FR (occurrence: FR)
  Receive Date: 20210806
  Receipt Date: 20210806
  Transmission Date: 20211014
  Serious: Yes (Hospitalization)
  Sender: FDA-Public Use
  Company Number: FR-ELI_LILLY_AND_COMPANY-FR202108001255

PATIENT
  Age: 68 Year
  Sex: Female

DRUGS (4)
  1. CYMBALTA [Suspect]
     Active Substance: DULOXETINE HYDROCHLORIDE
     Indication: MAJOR DEPRESSION
     Dosage: 60 MG, DAILY
     Route: 048
     Dates: start: 20210406, end: 20210414
  2. METHYLPREDNISOLONE. [Suspect]
     Active Substance: METHYLPREDNISOLONE
     Indication: INTESTINAL OBSTRUCTION
     Dosage: 100 MG, DAILY
     Route: 048
     Dates: end: 20210411
  3. METHYLPREDNISOLONE. [Suspect]
     Active Substance: METHYLPREDNISOLONE
     Dosage: 60 MG, DAILY
     Route: 048
     Dates: start: 20210412
  4. SANDOSTATINE [Suspect]
     Active Substance: OCTREOTIDE ACETATE
     Indication: INTESTINAL OBSTRUCTION
     Dosage: 1500 UG, DAILY
     Route: 041
     Dates: start: 20210401, end: 20210416

REACTIONS (1)
  - Mixed liver injury [Recovering/Resolving]

NARRATIVE: CASE EVENT DATE: 20210409
